FAERS Safety Report 6607446-1 (Version None)
Quarter: 2010Q1

REPORT INFORMATION
  Report Type: 
  Country: None (occurrence: None)
  Receive Date: 20100301
  Receipt Date: 20100215
  Transmission Date: 20100710
  Serious: Yes (Death)
  Sender: FDA-Public Use
  Company Number: US-JNJFOC-20100208702

PATIENT
  Age: 50 Year
  Sex: Male
  Weight: 103.42 kg

DRUGS (4)
  1. FENTANYL [Suspect]
     Indication: DRUG USE FOR UNKNOWN INDICATION
     Route: 062
  2. METHADONE [Suspect]
     Indication: DRUG USE FOR UNKNOWN INDICATION
  3. PERCOCET [Suspect]
     Indication: DRUG USE FOR UNKNOWN INDICATION
  4. ALPRAZOLAM [Suspect]
     Indication: DRUG USE FOR UNKNOWN INDICATION

REACTIONS (2)
  - DRUG TOXICITY [None]
  - WRONG TECHNIQUE IN DRUG USAGE PROCESS [None]
